FAERS Safety Report 7267163-4 (Version None)
Quarter: 2011Q1

REPORT INFORMATION
  Report Type: 
  Country: None (occurrence: None)
  Receive Date: 20110201
  Receipt Date: 20110122
  Transmission Date: 20110831
  Serious: Yes (Hospitalization)
  Sender: FDA-Public Use
  Company Number: TW-ASTRAZENECA-2011SE05041

PATIENT
  Age: 74 Year
  Sex: Male
  Weight: 110 kg

DRUGS (6)
  1. COLCHICINE [Concomitant]
     Route: 065
     Dates: start: 20060207
  2. AMARYL [Concomitant]
     Route: 065
     Dates: start: 20081209
  3. CELECOXIB, IBUPROFEN, NAPROXEN, PLACEBO [Suspect]
     Indication: OSTEOARTHRITIS
     Route: 048
     Dates: start: 20080108, end: 20100816
  4. CELECOXIB, IBUPROFEN, NAPROXEN, PLACEBO [Suspect]
     Indication: RHEUMATOID ARTHRITIS
     Route: 048
     Dates: start: 20080108, end: 20100816
  5. APROVEL [Concomitant]
     Route: 065
     Dates: start: 20060207
  6. NEXIUM [Suspect]
     Route: 048
     Dates: start: 20080108, end: 20100816

REACTIONS (1)
  - CORONARY ARTERY DISEASE [None]
